FAERS Safety Report 4363930-5 (Version None)
Quarter: 2004Q2

REPORT INFORMATION
  Report Type: 
  Country: None (occurrence: None)
  Receive Date: 20040520
  Receipt Date: 20031008
  Transmission Date: 20050107
  Serious: No
  Sender: FDA-Public Use
  Company Number: 2003-05784

PATIENT
  Age: 55 Year
  Sex: Male
  Weight: 95.2554 kg

DRUGS (5)
  1. HEPSERA [Suspect]
     Indication: HEPATITIS B
     Dosage: 10 MG ONCE A DAY, ORAL
     Route: 048
     Dates: start: 20030501
  2. COLCHICINE (COLCHICINE) [Concomitant]
  3. HYDROCORTISONE [Concomitant]
  4. ALLOPURINOL [Concomitant]
  5. TESTOSTERONE [Concomitant]

REACTIONS (1)
  - THERAPY NON-RESPONDER [None]
